FAERS Safety Report 4367535-1 (Version None)
Quarter: 2004Q2

REPORT INFORMATION
  Report Type: 
  Country: None (occurrence: None)
  Receive Date: 20040601
  Receipt Date: 20040409
  Transmission Date: 20050107
  Serious: Yes (Hospitalization)
  Sender: FDA-Public Use
  Company Number: JP-MERCK-0404USA01496

PATIENT
  Age: 2 Year
  Sex: Male
  Weight: 12 kg

DRUGS (8)
  1. AMBROXOL HYDROCHLORIDE [Suspect]
     Indication: RESPIRATORY TRACT INFECTION
     Route: 048
     Dates: start: 20040322, end: 20040328
  2. AMOXICILLIN [Suspect]
     Indication: RESPIRATORY TRACT INFECTION
     Route: 048
     Dates: start: 20040322, end: 20040326
  3. AZITHROMYCIN [Suspect]
     Indication: RESPIRATORY TRACT INFECTION
     Route: 048
     Dates: start: 20040326, end: 20040328
  4. CYPROHEPTADINE HYDROCHLORIDE [Suspect]
     Indication: RESPIRATORY TRACT INFECTION
     Route: 048
     Dates: start: 20040322, end: 20040326
  5. CYPROHEPTADINE HYDROCHLORIDE [Suspect]
     Route: 048
     Dates: start: 20040410, end: 20040411
  6. CYPROHEPTADINE HYDROCHLORIDE [Suspect]
     Route: 048
     Dates: start: 20040412, end: 20040415
  7. TIPEPIDINE HIBENZATE [Concomitant]
     Indication: RESPIRATORY TRACT INFECTION
     Route: 048
     Dates: start: 20040322, end: 20040328
  8. TULOBUTEROL HYDROCHLORIDE [Suspect]
     Indication: RESPIRATORY TRACT INFECTION
     Route: 048
     Dates: start: 20040322, end: 20040328

REACTIONS (2)
  - ERYTHEMA MULTIFORME [None]
  - PYREXIA [None]
